FAERS Safety Report 9306699 (Version 1)
Quarter: 2013Q1

REPORT INFORMATION
  Report Type: Spontaneous
  Country: US (occurrence: None)
  Receive Date: 20130327
  Receipt Date: 20130327
  Transmission Date: 20140127
  Serious: Yes (Hospitalization)
  Sender: FDA-Public Use
  Company Number: VAL_01918_2013

PATIENT
  Age: 62 Year
  Sex: Male

DRUGS (8)
  1. METOPROLOL [Suspect]
     Indication: PRODUCT USED FOR UNKNOWN INDICATION
     Dates: start: 20101123
  2. LISINOPRIL [Suspect]
     Indication: PRODUCT USED FOR UNKNOWN INDICATION
     Dates: start: 20101123
  3. SPIRONOLACTON [Suspect]
     Indication: PRODUCT USED FOR UNKNOWN INDICATION
     Dates: start: 20101123
  4. HUMALOG [Concomitant]
  5. LANTUS [Concomitant]
  6. ASPIRIN [Concomitant]
  7. SEROQUEL [Concomitant]
  8. EXETIMIBE [Concomitant]

REACTIONS (6)
  - Orthostatic hypotension [None]
  - Hydronephrosis [None]
  - Acute prerenal failure [None]
  - Fall [None]
  - Asthenia [None]
  - Product formulation issue [None]
